FAERS Safety Report 14319951 (Version 1)
Quarter: 2017Q4

REPORT INFORMATION
  Report Type: Spontaneous
  Country: US (occurrence: US)
  Receive Date: 20171221
  Receipt Date: 20171221
  Transmission Date: 20180321
  Serious: Yes (Other)
  Sender: FDA-Public Use
  Company Number: None

PATIENT
  Sex: Female

DRUGS (1)
  1. HARVONI [Suspect]
     Active Substance: LEDIPASVIR\SOFOSBUVIR
     Indication: CHRONIC HEPATITIS C
     Dosage: 90/400 QDFOR 8 WEEKS PO
     Route: 048
     Dates: start: 20171017, end: 20171124

REACTIONS (4)
  - Depression [None]
  - Emotional disorder [None]
  - Hallucination [None]
  - Mood swings [None]
